FAERS Safety Report 15565531 (Version 1)
Quarter: 2018Q4

REPORT INFORMATION
  Report Type: Report from Study
  Country: MX (occurrence: MX)
  Receive Date: 20181030
  Receipt Date: 20181030
  Transmission Date: 20190205
  Serious: Yes (Death, Hospitalization)
  Sender: FDA-Public Use
  Company Number: MX-BAYER-2018-196195

PATIENT
  Age: 58 Year
  Sex: Female

DRUGS (8)
  1. NEXAVAR [Suspect]
     Active Substance: SORAFENIB
     Indication: HEPATOCELLULAR CARCINOMA
     Dosage: 400 MG, BID
     Dates: start: 20180703, end: 20181001
  2. OMEPRAZOLE. [Concomitant]
     Active Substance: OMEPRAZOLE
  3. INSULIN [Concomitant]
     Active Substance: INSULIN NOS
  4. COMBIVENT [IPRATROPIUM BROMIDE,SALBUTAMOL] [Concomitant]
  5. SPIRONOLACTONE. [Concomitant]
     Active Substance: SPIRONOLACTONE
     Dates: start: 201809
  6. MICCIL [Concomitant]
     Dates: start: 201809
  7. PINAVERIUM BROMIDE [Concomitant]
     Active Substance: PINAVERIUM BROMIDE
  8. LACTULOSE. [Concomitant]
     Active Substance: LACTULOSE

REACTIONS (11)
  - Respiratory failure [Fatal]
  - Blood bilirubin increased [Fatal]
  - Jaundice [None]
  - Blood creatinine increased [Fatal]
  - Gastrointestinal haemorrhage [Fatal]
  - Haemorrhage [Fatal]
  - Blood urea increased [None]
  - Multiple organ dysfunction syndrome [Fatal]
  - Renal failure [Fatal]
  - Hepatic failure [Fatal]
  - Ulcer [Fatal]
